FAERS Safety Report 6092400-1 (Version None)
Quarter: 2009Q1

REPORT INFORMATION
  Report Type: 
  Country: None (occurrence: None)
  Receive Date: 20090225
  Receipt Date: 20090211
  Transmission Date: 20090719
  Serious: Yes (Other)
  Sender: FDA-Public Use
  Company Number: PHHY2009DK04979

PATIENT
  Age: 39 Year
  Sex: Male

DRUGS (5)
  1. LEPONEX [Suspect]
     Dosage: UNK
     Dates: start: 20060712
  2. LEPONEX [Suspect]
     Dosage: 50 MG + 300 MG
     Dates: start: 20070124
  3. CLOZAPINE HEXAL [Suspect]
  4. CLOZAPINE [Suspect]
     Dosage: 50 MG+ 300 MG
     Dates: start: 20070124
  5. SEROQUEL [Concomitant]
     Dosage: 100 MG + 700 MG
     Dates: start: 20070124

REACTIONS (4)
  - FALL [None]
  - HEAD INJURY [None]
  - HYPOTONIA [None]
  - PETIT MAL EPILEPSY [None]
